FAERS Safety Report 9404417 (Version 2)
Quarter: 2013Q3

REPORT INFORMATION
  Report Type: Spontaneous
  Country: US (occurrence: None)
  Receive Date: 20130715
  Receipt Date: 20130808
  Transmission Date: 20140515
  Serious: Yes (Hospitalization, Other)
  Sender: FDA-Public Use
  Company Number: ACO_37208_2013

PATIENT
  Age: 60 Year
  Sex: Female

DRUGS (7)
  1. AMPYRA [Suspect]
     Indication: GAIT DISTURBANCE
     Route: 048
     Dates: start: 20100722, end: 20130511
  2. AMPYRA [Suspect]
     Route: 048
     Dates: start: 20100722, end: 20130511
  3. FLUOXETINNE (FLUOXETINE HYDROCHLORIDE) [Concomitant]
  4. CYMBALTA (DULOXETINE HYDROCHLORIDE) [Concomitant]
  5. COPAZONE (GLATIRAMER ACETATE) [Concomitant]
  6. AMANTADINE (AMANTADINE) [Concomitant]
  7. SIMVASTATIN (SIMVASTATIN) [Concomitant]

REACTIONS (1)
  - Convulsion [None]
